FAERS Safety Report 11897410 (Version 2)
Quarter: 2016Q1

REPORT INFORMATION
  Report Type: Spontaneous
  Country: BR (occurrence: BR)
  Receive Date: 20160108
  Receipt Date: 20160204
  Transmission Date: 20160526
  Serious: Yes (Other)
  Sender: FDA-Public Use
  Company Number: BR-AMGEN-BRASP2015141103

PATIENT
  Age: 48 Year
  Sex: Female
  Weight: 94 kg

DRUGS (14)
  1. LOSARTAN POTASSIUM. [Concomitant]
     Active Substance: LOSARTAN POTASSIUM
     Dosage: 50 MG, EVERY 12 HOURS
     Dates: start: 2013
  2. SIMVASTATIN. [Concomitant]
     Active Substance: SIMVASTATIN
     Dosage: 20 MG, 1X/DAY
  3. CALTRATE 600+D [Concomitant]
     Dosage: UNK
  4. FOLIC ACID. [Concomitant]
     Active Substance: FOLIC ACID
     Dosage: STRENGTH 0.5MG, 2X/WEEK
  5. INSULIN NPH                        /01223208/ [Concomitant]
     Dosage: AT THREE TIMES DAILY (32 IN THE BREAKFAST AND LUNCH AND 28 AT DINNER)
     Dates: start: 2003
  6. METFORMIN [Concomitant]
     Active Substance: METFORMIN HYDROCHLORIDE
     Dosage: 850 MG, 3X/DAY
  7. OMEPRAZOLE. [Concomitant]
     Active Substance: OMEPRAZOLE
     Dosage: STRENGTH 20MG
  8. METHOTREXATE [Concomitant]
     Active Substance: METHOTREXATE
     Dosage: ONCE WEEKLY, (STRENGTH 100 MG)
     Dates: start: 2008
  9. FLUOXETINE [Concomitant]
     Active Substance: FLUOXETINE HYDROCHLORIDE
     Dosage: STRENGTH 20MG
  10. INSULIN REGULAR                    /01223201/ [Concomitant]
     Active Substance: INSULIN BEEF
     Dosage: 22 MG IN THE MORNING; 24MG AT LUNCH AND 12MG IN THE DINNER
     Dates: start: 2003
  11. DIPIRONE [Concomitant]
     Active Substance: METAMIZOLE SODIUM
     Indication: PAIN
     Dosage: UNK
  12. ENBREL [Suspect]
     Active Substance: ETANERCEPT
     Indication: RHEUMATOID ARTHRITIS
     Dosage: 50 MG, ONCE WEEKLY
     Route: 058
     Dates: start: 2013
  13. AAS [Concomitant]
     Active Substance: ASPIRIN
     Dosage: STRENGTH 100 MG, 1X/DAY
  14. CYCLOBENZAPRINE [Concomitant]
     Active Substance: CYCLOBENZAPRINE
     Indication: HYPOTONIA
     Dosage: UNK

REACTIONS (4)
  - Flavivirus infection [Recovered/Resolved]
  - Arthralgia [Unknown]
  - Urinary tract infection [Recovered/Resolved]
  - Eye disorder [Unknown]

NARRATIVE: CASE EVENT DATE: 201512
